FAERS Safety Report 4350344-7 (Version None)
Quarter: 2004Q2

REPORT INFORMATION
  Report Type: 
  Country: None (occurrence: None)
  Receive Date: 20040427
  Receipt Date: 20030915
  Transmission Date: 20050107
  Serious: No
  Sender: FDA-Public Use
  Company Number: 000645

PATIENT
  Age: 66 Year
  Sex: Female

DRUGS (7)
  1. ZEVALIN [Suspect]
     Indication: NON-HODGKIN'S LYMPHOMA
     Dosage: SEE IMAGE
     Dates: start: 20021113, end: 20021113
  2. ZEVALIN [Suspect]
     Indication: NON-HODGKIN'S LYMPHOMA
     Dosage: SEE IMAGE
     Dates: start: 20021113, end: 20021113
  3. ZEVALIN [Suspect]
     Indication: NON-HODGKIN'S LYMPHOMA
     Dosage: SEE IMAGE
     Dates: start: 20021120, end: 20021120
  4. ZEVALIN [Suspect]
     Indication: NON-HODGKIN'S LYMPHOMA
     Dosage: SEE IMAGE
     Dates: start: 20021120, end: 20021120
  5. ZEVALIN [Suspect]
  6. ZEVALIN [Suspect]
  7. .. [Suspect]

REACTIONS (1)
  - DISEASE PROGRESSION [None]
